FAERS Safety Report 24298966 (Version 2)
Quarter: 2024Q3

REPORT INFORMATION
  Report Type: Spontaneous
  Country: AR (occurrence: AR)
  Receive Date: 20240909
  Receipt Date: 20240919
  Transmission Date: 20241016
  Serious: Yes (Death, Other)
  Sender: SANOFI AVENTIS
  Company Number: AR-SA-2024SA257974

PATIENT
  Age: 54 Year
  Sex: Female

DRUGS (1)
  1. SARCLISA [Suspect]
     Active Substance: ISATUXIMAB-IRFC
     Indication: Plasma cell myeloma refractory
     Dosage: UNK
     Dates: start: 202408, end: 202408

REACTIONS (5)
  - Hypersensitivity [Fatal]
  - Gastrointestinal haemorrhage [Fatal]
  - Rhinitis [Unknown]
  - Drug hypersensitivity [Unknown]
  - Vomiting [Unknown]
